FAERS Safety Report 11327387 (Version 1)
Quarter: 2015Q3

REPORT INFORMATION
  Report Type: Spontaneous
  Country: US (occurrence: US)
  Receive Date: 20150731
  Receipt Date: 20150731
  Transmission Date: 20151125
  Serious: Yes (Hospitalization)
  Sender: FDA-Public Use
  Company Number: PHHY2015US089681

PATIENT
  Age: 82 Year
  Sex: Female

DRUGS (2)
  1. CIPROFLOXACIN. [Suspect]
     Active Substance: CIPROFLOXACIN
     Indication: COLITIS
     Route: 065
  2. METRONIDAZOLE. [Suspect]
     Active Substance: METRONIDAZOLE
     Indication: COLITIS
     Route: 065

REACTIONS (7)
  - Fatigue [Recovering/Resolving]
  - Sepsis [Recovering/Resolving]
  - Adrenal insufficiency [Recovering/Resolving]
  - Hyponatraemia [Recovering/Resolving]
  - Disseminated tuberculosis [Recovering/Resolving]
  - Cholestasis [Recovering/Resolving]
  - Drug-induced liver injury [Recovering/Resolving]
